FAERS Safety Report 4720218-8 (Version None)
Quarter: 2005Q3

REPORT INFORMATION
  Report Type: 
  Country: None (occurrence: None)
  Receive Date: 20050719
  Receipt Date: 20050719
  Transmission Date: 20060218
  Serious: Yes (Life-Threatening)
  Sender: FDA-Public Use
  Company Number: None

PATIENT
  Sex: Male
  Weight: 96.1626 kg

DRUGS (8)
  1. INTEGRILIN [Suspect]
     Indication: MYOCARDIAL INFARCTION
     Dosage: 180 MCG/KG  X2 INTRAVENOUS  ;  2 MG/KG/MIN  24 HOURS INTRAVENOUS
     Route: 042
     Dates: start: 20050712, end: 20050713
  2. INTEGRILIN [Suspect]
     Indication: STENT PLACEMENT
     Dosage: 180 MCG/KG  X2 INTRAVENOUS  ;  2 MG/KG/MIN  24 HOURS INTRAVENOUS
     Route: 042
     Dates: start: 20050712, end: 20050713
  3. LISINOPRIL [Concomitant]
  4. METOPROLOL [Concomitant]
  5. RANITIDINE [Concomitant]
  6. VYTORIN [Concomitant]
  7. ASPIRIN [Concomitant]
  8. CALCIUM CARBONATE [Concomitant]

REACTIONS (1)
  - THROMBOCYTOPENIA [None]
